FAERS Safety Report 4309536-5 (Version None)
Quarter: 2004Q1

REPORT INFORMATION
  Report Type: 
  Country: None (occurrence: None)
  Receive Date: 20040301
  Receipt Date: 20040218
  Transmission Date: 20041129
  Serious: Yes (Other)
  Sender: FDA-Public Use
  Company Number: AT-JNJFOC-20040204303

PATIENT
  Age: 73 Year
  Sex: Male

DRUGS (6)
  1. RISPERDAL [Suspect]
     Dosage: SEE IMAGE
     Route: 048
  2. BENZODIAZEPINE (BENZODIAZEPINE) [Suspect]
  3. LISINOPRIL AND HYDROCHLOROTHIAZIDE [Concomitant]
  4. DUSODRIL RETARD (NAFTIDROFURYL OXALATE)TABLETS [Concomitant]
  5. NORVASC (AMLODIPINE BESIALTE)TABLETS [Concomitant]
  6. VIBRAMYCIN [Concomitant]

REACTIONS (3)
  - DEHYDRATION [None]
  - GASTROENTERITIS [None]
  - SEDATION [None]
